FAERS Safety Report 7975954-7 (Version None)
Quarter: 2011Q4

REPORT INFORMATION
  Report Type: 
  Country: None (occurrence: None)
  Receive Date: 20111213
  Receipt Date: 20111007
  Transmission Date: 20120403
  Serious: No
  Sender: FDA-Public Use
  Company Number: US-AMGEN-USASP2011052044

PATIENT
  Age: 49 Year
  Sex: Female

DRUGS (1)
  1. ENBREL [Suspect]
     Indication: RHEUMATOID ARTHRITIS
     Dosage: 50 MG, QWK
     Dates: start: 20110801

REACTIONS (5)
  - ALOPECIA [None]
  - RASH MACULAR [None]
  - FATIGUE [None]
  - NAUSEA [None]
  - INCREASED TENDENCY TO BRUISE [None]
